FAERS Safety Report 18305763 (Version 1)
Quarter: 2020Q3

REPORT INFORMATION
  Report Type: Spontaneous
  Country: DE (occurrence: DE)
  Receive Date: 20200923
  Receipt Date: 20200923
  Transmission Date: 20201103
  Serious: Yes (Death, Life-Threatening, Hospitalization)
  Sender: FDA-Public Use
  Company Number: DE-ANIPHARMA-2020-DE-000210

PATIENT
  Age: 88 Year
  Sex: Male

DRUGS (8)
  1. FEBUXOSTAT. [Concomitant]
     Active Substance: FEBUXOSTAT
     Dosage: 80 MG QD
     Route: 065
  2. CANDESARTAN CILEXETIL. [Suspect]
     Active Substance: CANDESARTAN CILEXETIL
     Indication: PRODUCT USED FOR UNKNOWN INDICATION
     Dosage: 16 MG QD
     Route: 048
  3. RIVAROXABAN [Concomitant]
     Active Substance: RIVAROXABAN
     Dosage: 20 MG QD
     Route: 065
  4. ESOMEPRAZOLE. [Concomitant]
     Active Substance: ESOMEPRAZOLE MAGNESIUM
     Dosage: 20 MG QD
     Route: 065
  5. BISOPROLOL [Concomitant]
     Active Substance: BISOPROLOL
     Dosage: 5 MG QD
     Route: 065
  6. FOLIC ACID. [Concomitant]
     Active Substance: FOLIC ACID
     Dosage: 5 MG QD
     Route: 065
  7. OXYBUTYNIN. [Concomitant]
     Active Substance: OXYBUTYNIN CHLORIDE
     Dosage: 5 MG QD
     Route: 065
  8. COLECALCIFEROL [Concomitant]
     Active Substance: CHOLECALCIFEROL
     Dosage: 1000 IU QD
     Route: 065

REACTIONS (8)
  - Stridor [Unknown]
  - Tachycardia [Unknown]
  - Wheezing [Unknown]
  - Reflexes abnormal [Unknown]
  - Acute respiratory failure [Unknown]
  - Tachypnoea [Unknown]
  - Hypotension [Unknown]
  - Death [Not Recovered/Not Resolved]
